FAERS Safety Report 8447614 (Version 5)
Quarter: 2013Q1

REPORT INFORMATION
  Report Type: Spontaneous
  Country: DK (occurrence: DK)
  Receive Date: 20120308
  Receipt Date: 20130114
  Transmission Date: 20140127
  Serious: Yes (Life-Threatening, Hospitalization)
  Sender: FDA-Public Use
  Company Number: DK-JNJFOC-20120302050

PATIENT
  Age: 41 Year
  Sex: Male
  Weight: 103 kg

DRUGS (8)
  1. REMICADE [Suspect]
     Indication: COLITIS ULCERATIVE
     Route: 042
     Dates: start: 20111123, end: 20111207
  2. REMICADE [Suspect]
     Indication: COLITIS ULCERATIVE
     Dosage: 520 MG
     Route: 042
     Dates: start: 20120103, end: 20120103
  3. REMICADE [Suspect]
     Indication: COLITIS ULCERATIVE
     Route: 042
     Dates: start: 201201
  4. PREDNISOLONE [Concomitant]
     Dosage: FOR 1 WEEK HEREAFTER 50MG WITH REDUCTION TO 5MG PER WEEK TO 0.
     Route: 065
     Dates: start: 20111121
  5. PREDNISOLONE [Concomitant]
     Route: 065
     Dates: start: 20120202, end: 201204
  6. IMUREL [Concomitant]
     Indication: COLITIS ULCERATIVE
     Route: 065
     Dates: start: 20120103, end: 20120119
  7. ASACOL [Concomitant]
     Indication: COLITIS ULCERATIVE
     Route: 065
     Dates: start: 20090806
  8. SOLU-MEDROL [Concomitant]
     Indication: COLITIS ULCERATIVE
     Route: 065
     Dates: start: 20111115

REACTIONS (5)
  - Alveolitis allergic [Recovered/Resolved]
  - Dyspnoea [Recovered/Resolved]
  - Hypoxia [Recovered/Resolved]
  - Chromaturia [Recovered/Resolved]
  - Cough [Recovered/Resolved]
